FAERS Safety Report 6657519-2 (Version None)
Quarter: 2010Q1

REPORT INFORMATION
  Report Type: 
  Country: None (occurrence: None)
  Receive Date: 20100326
  Receipt Date: 20100318
  Transmission Date: 20100710
  Serious: Yes (Death, Hospitalization, Other)
  Sender: FDA-Public Use
  Company Number: 2010SP016674

PATIENT
  Age: 76 Year
  Sex: Male

DRUGS (1)
  1. TICE BCG [Suspect]
     Indication: BLADDER CANCER

REACTIONS (4)
  - AORTIC ANEURYSM [None]
  - BOVINE TUBERCULOSIS [None]
  - MYOCARDIAL INFARCTION [None]
  - OSTEOMYELITIS [None]
